FAERS Safety Report 15622184 (Version 1)
Quarter: 2018Q4

REPORT INFORMATION
  Report Type: Spontaneous
  Country: US (occurrence: US)
  Receive Date: 20181115
  Receipt Date: 20181115
  Transmission Date: 20190205
  Serious: Yes (Life-Threatening)
  Sender: FDA-Public Use
  Company Number: US-PERRIGO-18US012638

PATIENT
  Age: 41 Year
  Sex: Female

DRUGS (1)
  1. POTASSIUM CHLORIDE. [Suspect]
     Active Substance: POTASSIUM CHLORIDE
     Indication: SUICIDE ATTEMPT
     Dosage: 120 GRAMS, SINGLE
     Route: 048

REACTIONS (6)
  - Electrocardiogram abnormal [None]
  - Intentional overdose [Recovered/Resolved]
  - Hyperkalaemia [Recovered/Resolved]
  - Pulse absent [Recovered/Resolved]
  - Bradycardia [Recovered/Resolved]
  - Apnoeic attack [Recovered/Resolved]
